FAERS Safety Report 10068092 (Version 1)
Quarter: 2014Q2

REPORT INFORMATION
  Report Type: Spontaneous
  Country: US (occurrence: US)
  Receive Date: 20140409
  Receipt Date: 20140409
  Transmission Date: 20141212
  Serious: Yes (Death)
  Sender: FDA-Public Use
  Company Number: US-MERCK-1404USA004111

PATIENT
  Sex: Male

DRUGS (1)
  1. FINASTERIDE [Suspect]

REACTIONS (2)
  - Completed suicide [Fatal]
  - Suicidal ideation [Unknown]
